FAERS Safety Report 14129149 (Version 2)
Quarter: 2017Q4

REPORT INFORMATION
  Report Type: Spontaneous
  Country: US (occurrence: US)
  Receive Date: 20171026
  Receipt Date: 20171101
  Transmission Date: 20180321
  Serious: No
  Sender: FDA-Public Use
  Company Number: US-B.I. PHARMACEUTICALS,INC./RIDGEFIELD-2017-BI-057730

PATIENT
  Sex: Female

DRUGS (1)
  1. TRADJENTA [Suspect]
     Active Substance: LINAGLIPTIN
     Indication: DIABETES MELLITUS
     Dosage: FORM STRENGTH: 5 MG; FORMULATION: TABLET? ?ACTION(S) TAKEN WITH PRODUCT: DRUG WITHDRAWN
     Route: 065

REACTIONS (5)
  - Neuralgia [Unknown]
  - Blood glucose abnormal [Unknown]
  - Renal disorder [Unknown]
  - Eye swelling [Unknown]
  - Lung disorder [Unknown]
